FAERS Safety Report 4358842-7 (Version None)
Quarter: 2004Q2

REPORT INFORMATION
  Report Type: 
  Country: None (occurrence: None)
  Receive Date: 20040511
  Receipt Date: 20040425
  Transmission Date: 20050107
  Serious: Yes (Death)
  Sender: FDA-Public Use
  Company Number: CEL-2004-00749-ROC

PATIENT
  Age: 1 Month
  Sex: Male

DRUGS (1)
  1. TUSSIONEX [Suspect]
     Indication: SLEEP DISORDER
     Dosage: 2.5ML, ONCE
     Dates: start: 20040201, end: 20040201

REACTIONS (2)
  - MEDICATION ERROR [None]
  - TOXICOLOGIC TEST ABNORMAL [None]
